FAERS Safety Report 25346959 (Version 1)
Quarter: 2025Q2

REPORT INFORMATION
  Report Type: Spontaneous
  Country: US (occurrence: None)
  Receive Date: 20250521
  Receipt Date: 20250521
  Transmission Date: 20250716
  Serious: No
  Sender: FDA-CTU
  Company Number: None

PATIENT
  Age: 61 Year
  Sex: Male
  Weight: 72 kg

DRUGS (1)
  1. METFORMIN HYDROCHLORIDE [Suspect]
     Active Substance: METFORMIN HYDROCHLORIDE
     Dosage: 1000.0 MG TWICE A DAY ORAL ?
     Route: 048

REACTIONS (3)
  - Lactic acidosis [None]
  - Abdominal pain [None]
  - Melaena [None]

NARRATIVE: CASE EVENT DATE: 20240328
